FAERS Safety Report 7536897-6 (Version None)
Quarter: 2011Q2

REPORT INFORMATION
  Report Type: 
  Country: None (occurrence: None)
  Receive Date: 20110609
  Receipt Date: 20110601
  Transmission Date: 20111010
  Serious: Yes (Other)
  Sender: FDA-Public Use
  Company Number: US-ROCHE-780513

PATIENT
  Sex: Male

DRUGS (2)
  1. ERBITUX [Suspect]
     Indication: COLORECTAL CANCER
     Route: 065
  2. XELODA [Suspect]
     Indication: COLORECTAL CANCER
     Dosage: 07 DAYS ON/ 07 DAYS OFF
     Route: 048
     Dates: start: 20100824

REACTIONS (2)
  - RENAL IMPAIRMENT [None]
  - TUMOUR MARKER INCREASED [None]
